FAERS Safety Report 23559144 (Version 2)
Quarter: 2024Q3

REPORT INFORMATION
  Report Type: Spontaneous
  Country: JP (occurrence: JP)
  Receive Date: 20240223
  Receipt Date: 20240703
  Transmission Date: 20241017
  Serious: Yes (Other)
  Sender: PFIZER
  Company Number: JP-PFIZER INC-PV202400015468

PATIENT
  Age: 10 Year
  Sex: Male
  Weight: 31.7 kg

DRUGS (8)
  1. ATGAM [Suspect]
     Active Substance: EQUINE THYMOCYTE IMMUNE GLOBULIN
     Indication: Aplastic anaemia
     Dosage: 780 MG, 1X/DAY
     Route: 042
     Dates: start: 20240130, end: 20240202
  2. CEFEPIME [Concomitant]
     Active Substance: CEFEPIME HYDROCHLORIDE
     Indication: Febrile neutropenia
     Dosage: 1000 MG, 3X/DAY
     Route: 042
     Dates: start: 20240130, end: 20240203
  3. MICAFUNGIN [Concomitant]
     Active Substance: MICAFUNGIN SODIUM
     Indication: Systemic mycosis
     Dosage: 75 MG, 1X/DAY
     Route: 042
     Dates: start: 20240105, end: 20240213
  4. SOLU-MEDROL [Concomitant]
     Active Substance: METHYLPREDNISOLONE SODIUM SUCCINATE
     Indication: Prophylaxis
     Dosage: 60 MG, 1X/DAY
     Route: 042
     Dates: start: 20240130, end: 20240130
  5. SOLU-MEDROL [Concomitant]
     Active Substance: METHYLPREDNISOLONE SODIUM SUCCINATE
     Dosage: 60 MG, 2X/DAY
     Route: 042
     Dates: start: 20240131, end: 20240202
  6. ACETAMINOPHEN [Concomitant]
     Active Substance: ACETAMINOPHEN
     Indication: Antipyresis
     Dosage: 200 MG, 4X/DAY
     Route: 048
     Dates: start: 20240130, end: 20240202
  7. EPINASTINE [Concomitant]
     Active Substance: EPINASTINE
     Indication: Allergy prophylaxis
     Dosage: 20 MG, 1X/DAY
     Route: 048
     Dates: start: 20240130, end: 20240202
  8. NEORAL [Concomitant]
     Active Substance: CYCLOSPORINE
     Indication: Aplastic anaemia
     Dosage: 75 MG, 2X/DAY
     Route: 048
     Dates: start: 20240131

REACTIONS (13)
  - White blood cell count decreased [Recovered/Resolved]
  - Lymphocyte count decreased [Recovered/Resolved]
  - Infusion related reaction [Recovered/Resolved]
  - Pyrexia [Recovered/Resolved]
  - Erythema [Recovered/Resolved]
  - Aspartate aminotransferase increased [Recovered/Resolved]
  - Activated partial thromboplastin time prolonged [Unknown]
  - Activated partial thromboplastin time shortened [Unknown]
  - Blood bilirubin unconjugated increased [Not Recovered/Not Resolved]
  - Blood creatine phosphokinase decreased [Not Recovered/Not Resolved]
  - Blood creatinine decreased [Not Recovered/Not Resolved]
  - Blood fibrinogen increased [Recovered/Resolved]
  - Blood triglycerides increased [Not Recovered/Not Resolved]

NARRATIVE: CASE EVENT DATE: 20240130
